FAERS Safety Report 5631492-8 (Version None)
Quarter: 2008Q1

REPORT INFORMATION
  Report Type: 
  Country: None (occurrence: None)
  Receive Date: 20080215
  Receipt Date: 20080201
  Transmission Date: 20080703
  Serious: Yes (Hospitalization, Other)
  Sender: FDA-Public Use
  Company Number: 231170J08USA

PATIENT
  Age: 50 Year
  Sex: Female
  Weight: 202.3 kg

DRUGS (4)
  1. REBIF [Suspect]
     Indication: MULTIPLE SCLEROSIS
     Dosage: 44 MCG, 3 IN 1 WEEKS, SUBCUTANEOUS
     Route: 058
     Dates: start: 20070402
  2. GLUCOPHAGE [Concomitant]
  3. LISINOPRIL [Concomitant]
  4. BACLOFEN [Concomitant]

REACTIONS (5)
  - ANAEMIA [None]
  - FALL [None]
  - HAEMATOCHEZIA [None]
  - NEOPLASM MALIGNANT [None]
  - SPLEEN DISORDER [None]
